FAERS Safety Report 6090054-1 (Version None)
Quarter: 2009Q1

REPORT INFORMATION
  Report Type: 
  Country: None (occurrence: None)
  Receive Date: 20090224
  Receipt Date: 20081203
  Transmission Date: 20090719
  Serious: No
  Sender: FDA-Public Use
  Company Number: US-ABBOTT-08P-163-0490939-00

PATIENT
  Sex: Male
  Weight: 5.88 kg

DRUGS (3)
  1. SIMCOR [Suspect]
     Indication: BLOOD CHOLESTEROL INCREASED
     Dosage: 500/20 MG
     Dates: start: 20081201
  2. SIMCOR [Suspect]
  3. ASPIRIN [Concomitant]
     Indication: PREMEDICATION

REACTIONS (2)
  - FLUSHING [None]
  - HEADACHE [None]
